FAERS Safety Report 15003249 (Version 2)
Quarter: 2018Q2

REPORT INFORMATION
  Report Type: Report from Study
  Country: None (occurrence: CA)
  Receive Date: 20180613
  Receipt Date: 20180621
  Transmission Date: 20180711
  Serious: Yes (Other)
  Sender: FDA-Public Use
  Company Number: CA-ABBVIE-18K-028-2382484-00

PATIENT
  Sex: Female

DRUGS (3)
  1. MOGADON [Concomitant]
     Active Substance: NITRAZEPAM
     Dosage: DOSE INCREASED
     Route: 048
     Dates: start: 2018
  2. HUMIRA [Suspect]
     Active Substance: ADALIMUMAB
     Indication: ANKYLOSING SPONDYLITIS
     Route: 058
     Dates: start: 20171113, end: 20180514
  3. MOGADON [Concomitant]
     Active Substance: NITRAZEPAM
     Indication: INSOMNIA
     Route: 048
     Dates: end: 2018

REACTIONS (9)
  - Depression [Not Recovered/Not Resolved]
  - Vaginal infection [Unknown]
  - Ingrown hair [Unknown]
  - Urinary tract infection [Unknown]
  - Cyst [Unknown]
  - Somnolence [Not Recovered/Not Resolved]
  - Malaise [Not Recovered/Not Resolved]
  - Insomnia [Unknown]
  - Ankylosing spondylitis [Not Recovered/Not Resolved]

NARRATIVE: CASE EVENT DATE: 2018
